FAERS Safety Report 25768415 (Version 1)
Quarter: 2025Q3

REPORT INFORMATION
  Report Type: Spontaneous
  Country: US (occurrence: US)
  Receive Date: 20250905
  Receipt Date: 20250905
  Transmission Date: 20251020
  Serious: No
  Sender: DOMPE FARMACEUTICI
  Company Number: US-FARMAPROD-202506-2162

PATIENT
  Sex: Female

DRUGS (14)
  1. OXERVATE [Suspect]
     Active Substance: CENEGERMIN-BKBJ
     Indication: Neurotrophic keratopathy
     Route: 047
     Dates: start: 20250604
  2. PROBIOTICS NOS [Concomitant]
     Active Substance: PROBIOTICS NOS
  3. PROTEIN [Concomitant]
     Active Substance: PROTEIN
  4. WOMEN^S MULTIVITAMIN [Concomitant]
  5. FAMOTIDINE [Concomitant]
     Active Substance: FAMOTIDINE
  6. CLEARLAX [Concomitant]
     Active Substance: POLYETHYLENE GLYCOL 3350
  7. ESTRADIOL [Concomitant]
     Active Substance: ESTRADIOL
  8. DORZOLAMIDE AND TIMOLOL [Concomitant]
     Active Substance: DORZOLAMIDE HYDROCHLORIDE\TIMOLOL MALEATE
  9. PRED FORTE [Concomitant]
     Active Substance: PREDNISOLONE ACETATE
  10. ROSUVASTATIN CALCIUM [Concomitant]
     Active Substance: ROSUVASTATIN CALCIUM
  11. AMIODARONE HYDROCHLORIDE [Concomitant]
     Active Substance: AMIODARONE HYDROCHLORIDE
  12. METOPROLOL SUCCINATE [Concomitant]
     Active Substance: METOPROLOL SUCCINATE
  13. ELIQUIS [Concomitant]
     Active Substance: APIXABAN
  14. ENTRESTO [Concomitant]
     Active Substance: SACUBITRIL\VALSARTAN

REACTIONS (2)
  - Eye pain [Unknown]
  - Lacrimation increased [Unknown]
